FAERS Safety Report 10682945 (Version 2)
Quarter: 2014Q4

REPORT INFORMATION
  Report Type: Spontaneous
  Country: US (occurrence: None)
  Receive Date: 20141217
  Receipt Date: 20141217
  Transmission Date: 20150529
  Serious: Yes (Other)
  Sender: FDA-Public Use
  Company Number: TPA2010A02270

PATIENT
  Age: 6 Decade
  Sex: Male

DRUGS (1)
  1. KAPIDEX [Suspect]
     Active Substance: DEXLANSOPRAZOLE
     Indication: PRODUCT USED FOR UNKNOWN INDICATION

REACTIONS (2)
  - Pharyngeal oedema [None]
  - Anaphylactic shock [None]

NARRATIVE: CASE EVENT DATE: 20090312
